FAERS Safety Report 21189138 (Version 1)
Quarter: 2022Q3

REPORT INFORMATION
  Report Type: Spontaneous
  Country: CN (occurrence: CN)
  Receive Date: 20220809
  Receipt Date: 20220809
  Transmission Date: 20221027
  Serious: Yes (Hospitalization)
  Sender: FDA-Public Use
  Company Number: CN-TENSHI KAIZEN PRIVATE LIMITED-2022TK000024

PATIENT
  Age: 69 Year
  Sex: Female

DRUGS (3)
  1. LORATADINE [Suspect]
     Active Substance: LORATADINE
     Indication: Rhinitis allergic
     Dosage: UNK
     Route: 048
     Dates: start: 20201025
  2. DACOMITINIB [Interacting]
     Active Substance: DACOMITINIB
     Indication: Non-small cell lung cancer
     Dosage: 45 MILLIGRAM, QD
     Route: 048
     Dates: start: 20200929
  3. METOPROLOL [Interacting]
     Active Substance: METOPROLOL
     Indication: Tachycardia
     Dosage: UNK, (EXTENDED ACTION TABLET, TABLET)
     Route: 048
     Dates: start: 20201031

REACTIONS (1)
  - Drug-induced liver injury [Recovered/Resolved]

NARRATIVE: CASE EVENT DATE: 20201101
